FAERS Safety Report 17374904 (Version 1)
Quarter: 2020Q1

REPORT INFORMATION
  Report Type: Spontaneous
  Country: IT (occurrence: IT)
  Receive Date: 20200205
  Receipt Date: 20200205
  Transmission Date: 20200409
  Serious: Yes (Other)
  Sender: FDA-Public Use
  Company Number: IT-APOTEX-2020AP007273

PATIENT
  Age: 48 Year
  Sex: Female

DRUGS (1)
  1. SEROXAT [Suspect]
     Active Substance: PAROXETINE HYDROCHLORIDE
     Indication: DEPRESSION
     Dosage: UNK
     Route: 065

REACTIONS (7)
  - Abdominal pain [Unknown]
  - Vomiting [Unknown]
  - Vertigo [Unknown]
  - Wrong technique in product usage process [Unknown]
  - Biliary colic [Unknown]
  - Dysentery [Unknown]
  - Inappropriate schedule of product administration [Unknown]
